FAERS Safety Report 4320638-X (Version None)
Quarter: 2004Q1

REPORT INFORMATION
  Report Type: 
  Country: None (occurrence: None)
  Receive Date: 20040318
  Receipt Date: 20040308
  Transmission Date: 20041129
  Serious: Yes (Hospitalization)
  Sender: FDA-Public Use
  Company Number: DE-JNJFOC-20040301829

PATIENT
  Age: 61 Year
  Sex: Male
  Weight: 92.5 kg

DRUGS (1)
  1. REMICADE [Suspect]
     Indication: RHEUMATOID ARTHRITIS
     Dosage: INTRAVENOUS
     Route: 042
     Dates: start: 20040128, end: 20040216

REACTIONS (2)
  - DYSPNOEA [None]
  - TACHYARRHYTHMIA [None]
